FAERS Safety Report 7931710-7 (Version None)
Quarter: 2011Q4

REPORT INFORMATION
  Report Type: 
  Country: None (occurrence: None)
  Receive Date: 20111121
  Receipt Date: 20111110
  Transmission Date: 20120403
  Serious: Yes (Other)
  Sender: FDA-Public Use
  Company Number: PHHY2011GB099495

PATIENT
  Sex: Female

DRUGS (1)
  1. CARBAMAZEPINE [Suspect]

REACTIONS (2)
  - ATRIOVENTRICULAR BLOCK [None]
  - CONCOMITANT DISEASE AGGRAVATED [None]
